FAERS Safety Report 25974293 (Version 1)
Quarter: 2025Q4

REPORT INFORMATION
  Report Type: Spontaneous
  Country: CN (occurrence: CN)
  Receive Date: 20251029
  Receipt Date: 20251029
  Transmission Date: 20260118
  Serious: Yes (Hospitalization)
  Sender: MYLAN
  Company Number: CN-MYLANLABS-2025M1091555

PATIENT
  Age: 46 Year
  Sex: Male

DRUGS (20)
  1. SILDENAFIL [Suspect]
     Active Substance: SILDENAFIL
     Indication: Product used for unknown indication
     Dosage: 15.8 MILLIGRAM, QD, FOUND IN TRADITIONAL CHINESE MEDICINE IN BAG POWDER WITH THE CONTENT OF 2.0 MG/G WITH DAILY INTAKE OF 15.8 MG
  2. SILDENAFIL [Suspect]
     Active Substance: SILDENAFIL
     Dosage: 15.8 MILLIGRAM, QD, FOUND IN TRADITIONAL CHINESE MEDICINE IN BAG POWDER WITH THE CONTENT OF 2.0 MG/G WITH DAILY INTAKE OF 15.8 MG
     Route: 065
  3. SILDENAFIL [Suspect]
     Active Substance: SILDENAFIL
     Dosage: 15.8 MILLIGRAM, QD, FOUND IN TRADITIONAL CHINESE MEDICINE IN BAG POWDER WITH THE CONTENT OF 2.0 MG/G WITH DAILY INTAKE OF 15.8 MG
     Route: 065
  4. SILDENAFIL [Suspect]
     Active Substance: SILDENAFIL
     Dosage: 15.8 MILLIGRAM, QD, FOUND IN TRADITIONAL CHINESE MEDICINE IN BAG POWDER WITH THE CONTENT OF 2.0 MG/G WITH DAILY INTAKE OF 15.8 MG
  5. DICLOFENAC [Suspect]
     Active Substance: DICLOFENAC
     Indication: Gout
     Dosage: 45.6 MILLIGRAM, QD, FOUND IN TRADITIONAL CHINESE MEDICINE IN PAPER PACKAGE PILL WITH THE CONTENT OF 5.7 MG/G WITH DAILY INTAKE OF 22.8-45.6 MG
  6. DICLOFENAC [Suspect]
     Active Substance: DICLOFENAC
     Dosage: 45.6 MILLIGRAM, QD, FOUND IN TRADITIONAL CHINESE MEDICINE IN PAPER PACKAGE PILL WITH THE CONTENT OF 5.7 MG/G WITH DAILY INTAKE OF 22.8-45.6 MG
     Route: 065
  7. DICLOFENAC [Suspect]
     Active Substance: DICLOFENAC
     Dosage: 45.6 MILLIGRAM, QD, FOUND IN TRADITIONAL CHINESE MEDICINE IN PAPER PACKAGE PILL WITH THE CONTENT OF 5.7 MG/G WITH DAILY INTAKE OF 22.8-45.6 MG
     Route: 065
  8. DICLOFENAC [Suspect]
     Active Substance: DICLOFENAC
     Dosage: 45.6 MILLIGRAM, QD, FOUND IN TRADITIONAL CHINESE MEDICINE IN PAPER PACKAGE PILL WITH THE CONTENT OF 5.7 MG/G WITH DAILY INTAKE OF 22.8-45.6 MG
  9. ACETAMINOPHEN [Suspect]
     Active Substance: ACETAMINOPHEN
     Indication: Gout
     Dosage: 3.2 MILLIGRAM, QD, FOUND IN TRADITIONAL CHINESE MEDICINE IN BAG POWDER WITH THE CONTENT OF 0.4 MG/G WITH DAILY INTAKE OF 3.2 MG
  10. ACETAMINOPHEN [Suspect]
     Active Substance: ACETAMINOPHEN
     Dosage: 3.2 MILLIGRAM, QD, FOUND IN TRADITIONAL CHINESE MEDICINE IN BAG POWDER WITH THE CONTENT OF 0.4 MG/G WITH DAILY INTAKE OF 3.2 MG
     Route: 065
  11. ACETAMINOPHEN [Suspect]
     Active Substance: ACETAMINOPHEN
     Dosage: 3.2 MILLIGRAM, QD, FOUND IN TRADITIONAL CHINESE MEDICINE IN BAG POWDER WITH THE CONTENT OF 0.4 MG/G WITH DAILY INTAKE OF 3.2 MG
     Route: 065
  12. ACETAMINOPHEN [Suspect]
     Active Substance: ACETAMINOPHEN
     Dosage: 3.2 MILLIGRAM, QD, FOUND IN TRADITIONAL CHINESE MEDICINE IN BAG POWDER WITH THE CONTENT OF 0.4 MG/G WITH DAILY INTAKE OF 3.2 MG
  13. TADALAFIL [Suspect]
     Active Substance: TADALAFIL
     Indication: Product used for unknown indication
     Dosage: 30.5 MILLIGRAM, QD, FOUND IN TRADITIONAL CHINESE MEDICINE IN CAPSULE
  14. TADALAFIL [Suspect]
     Active Substance: TADALAFIL
     Dosage: 30.5 MILLIGRAM, QD, FOUND IN TRADITIONAL CHINESE MEDICINE IN CAPSULE
  15. TADALAFIL [Suspect]
     Active Substance: TADALAFIL
     Dosage: 30.5 MILLIGRAM, QD, FOUND IN TRADITIONAL CHINESE MEDICINE IN CAPSULE
     Route: 065
  16. TADALAFIL [Suspect]
     Active Substance: TADALAFIL
     Dosage: 30.5 MILLIGRAM, QD, FOUND IN TRADITIONAL CHINESE MEDICINE IN CAPSULE
     Route: 065
  17. TADALAFIL [Suspect]
     Active Substance: TADALAFIL
     Dosage: FOUND IN TRADITIONAL CHINESE MEDICINE IN BAG PACKAGE POWDER
  18. TADALAFIL [Suspect]
     Active Substance: TADALAFIL
     Dosage: FOUND IN TRADITIONAL CHINESE MEDICINE IN BAG PACKAGE POWDER
  19. TADALAFIL [Suspect]
     Active Substance: TADALAFIL
     Dosage: FOUND IN TRADITIONAL CHINESE MEDICINE IN BAG PACKAGE POWDER
     Route: 065
  20. TADALAFIL [Suspect]
     Active Substance: TADALAFIL
     Dosage: FOUND IN TRADITIONAL CHINESE MEDICINE IN BAG PACKAGE POWDER
     Route: 065

REACTIONS (7)
  - Cerebral infarction [Unknown]
  - Multiple organ dysfunction syndrome [Unknown]
  - Haemorrhage [Unknown]
  - Toxicity to various agents [Unknown]
  - Myocardial infarction [Unknown]
  - Hepatic function abnormal [Unknown]
  - Overdose [Unknown]
